FAERS Safety Report 11993001 (Version 1)
Quarter: 2016Q1

REPORT INFORMATION
  Report Type: Spontaneous
  Country: US (occurrence: None)
  Receive Date: 20160202
  Receipt Date: 20160202
  Transmission Date: 20160526
  Serious: No
  Sender: FDA-Public Use
  Company Number: None

PATIENT
  Age: 36 Year
  Sex: Female
  Weight: 51.26 kg

DRUGS (1)
  1. PARAGARD T 380A [Suspect]
     Active Substance: COPPER
     Dates: end: 20160129

REACTIONS (4)
  - Vaginal discharge [None]
  - Device toxicity [None]
  - Menorrhagia [None]
  - Vaginal odour [None]

NARRATIVE: CASE EVENT DATE: 20160129
